FAERS Safety Report 7145891-9 (Version None)
Quarter: 2010Q4

REPORT INFORMATION
  Report Type: 
  Country: None (occurrence: None)
  Receive Date: 20101208
  Receipt Date: 20101129
  Transmission Date: 20110411
  Serious: Yes (Hospitalization, Other)
  Sender: FDA-Public Use
  Company Number: MX-JNJFOC-20101201249

PATIENT
  Age: 44 Year
  Sex: Female
  Weight: 50 kg

DRUGS (4)
  1. ORTHO EVRA [Suspect]
     Indication: CONTRACEPTION
     Dosage: NORELGESTROMIN 6 MG/ETHINYL ESTRADIOL 0.6 MG
     Route: 062
  2. PENPROCILINA [Suspect]
     Indication: INFLUENZA
     Route: 065
  3. L-OMBRIX [Suspect]
     Indication: INFECTION PARASITIC
     Route: 065
  4. HYDROCORTISONE [Suspect]
     Indication: HYPERSENSITIVITY
     Route: 065

REACTIONS (11)
  - ACNE [None]
  - APPLICATION SITE PRURITUS [None]
  - FEELING DRUNK [None]
  - HYPERSENSITIVITY [None]
  - INFLUENZA [None]
  - PRURITUS [None]
  - SELF-MEDICATION [None]
  - SKIN ATROPHY [None]
  - SWELLING [None]
  - WOUND [None]
  - WOUND SECRETION [None]
